FAERS Safety Report 17367607 (Version 1)
Quarter: 2020Q1

REPORT INFORMATION
  Report Type: Spontaneous
  Country: PT (occurrence: PT)
  Receive Date: 20200204
  Receipt Date: 20200204
  Transmission Date: 20200409
  Serious: Yes (Hospitalization, Other)
  Sender: FDA-Public Use
  Company Number: PT-JNJFOC-20200142530

PATIENT
  Sex: Female

DRUGS (4)
  1. RIVAROXABAN [Suspect]
     Active Substance: RIVAROXABAN
     Indication: PRODUCT USED FOR UNKNOWN INDICATION
     Dosage: UNK
     Route: 048
     Dates: start: 2018
  2. HEPARIN [Concomitant]
     Active Substance: HEPARIN SODIUM
  3. CLARITHROMYCIN. [Suspect]
     Active Substance: CLARITHROMYCIN
     Indication: RESPIRATORY DISORDER
     Dosage: 1 DF, QD
  4. APIXABAN [Concomitant]
     Active Substance: APIXABAN
     Dosage: 2.5MG

REACTIONS (3)
  - International normalised ratio increased [Unknown]
  - Respiratory disorder [Unknown]
  - Labelled drug-disease interaction medication error [Unknown]
